FAERS Safety Report 8863240 (Version 1)
Quarter: 2012Q4

REPORT INFORMATION
  Report Type: Report from Study
  Country: US (occurrence: US)
  Receive Date: 20121025
  Receipt Date: 20121025
  Transmission Date: 20130627
  Serious: No
  Sender: FDA-Public Use
  Company Number: US-ABBOTT-12P-163-0924492-00

PATIENT
  Sex: Female

DRUGS (1)
  1. LUPRON DEPOT 3.75 MG [Suspect]
     Indication: ENDOMETRIOSIS
     Route: 030
     Dates: start: 20120220

REACTIONS (7)
  - Localised intraabdominal fluid collection [Not Recovered/Not Resolved]
  - Poor quality sleep [Not Recovered/Not Resolved]
  - Abdominal pain [Not Recovered/Not Resolved]
  - Migraine [Not Recovered/Not Resolved]
  - Hot flush [Not Recovered/Not Resolved]
  - Depression [Not Recovered/Not Resolved]
  - Mood swings [Not Recovered/Not Resolved]
